FAERS Safety Report 4787006-8 (Version None)
Quarter: 2005Q3

REPORT INFORMATION
  Report Type: 
  Country: None (occurrence: None)
  Receive Date: 20050930
  Receipt Date: 20050917
  Transmission Date: 20060218
  Serious: Yes (Life-Threatening, Hospitalization, Other)
  Sender: FDA-Public Use
  Company Number: GXKR2005US01654

PATIENT
  Age: 39 Year
  Sex: Female

DRUGS (8)
  1. FLUOXETINE [Suspect]
  2. LINEZOLID (LINEZOLID) [Suspect]
  3. BUSPIRONE HCL [Concomitant]
  4. CYCLOBENZAPRINE HCL [Concomitant]
  5. DISULFIRAM [Concomitant]
  6. LORAZEPAM [Concomitant]
  7. HALOPERIDOL [Concomitant]
  8. VANCOMYCIN [Concomitant]

REACTIONS (5)
  - DRUG INTERACTION [None]
  - OVERDOSE [None]
  - RESPIRATORY DEPRESSION [None]
  - SEROTONIN SYNDROME [None]
  - STAPHYLOCOCCAL INFECTION [None]
